FAERS Safety Report 24551094 (Version 2)
Quarter: 2024Q4

REPORT INFORMATION
  Report Type: Spontaneous
  Country: JP (occurrence: JP)
  Receive Date: 20241025
  Receipt Date: 20241101
  Transmission Date: 20250115
  Serious: Yes (Hospitalization, Other)
  Sender: BAUSCH AND LOMB
  Company Number: JP-MLMSERVICE-20240807-PI155191-00285-1

PATIENT
  Age: 8 Decade
  Sex: Male

DRUGS (14)
  1. FENOFIBRATE [Interacting]
     Active Substance: FENOFIBRATE
     Indication: Product used for unknown indication
     Dosage: 160MG/DAY
     Route: 065
  2. AMANTADINE [Interacting]
     Active Substance: AMANTADINE
     Indication: Orthostatic hypotension
     Route: 065
  3. DROXIDOPA [Interacting]
     Active Substance: DROXIDOPA
     Indication: Orthostatic hypotension
     Route: 065
  4. ISTRADEFYLLINE [Interacting]
     Active Substance: ISTRADEFYLLINE
     Indication: Product used for unknown indication
     Route: 065
  5. RISPERIDONE [Interacting]
     Active Substance: RISPERIDONE
     Indication: Product used for unknown indication
     Route: 065
  6. AMLODIPINE [Interacting]
     Active Substance: AMLODIPINE BESYLATE
     Indication: Product used for unknown indication
     Route: 065
  7. LUBIPROSTONE [Interacting]
     Active Substance: LUBIPROSTONE
     Indication: Product used for unknown indication
     Route: 065
  8. MAGNESIUM OXIDE [Interacting]
     Active Substance: MAGNESIUM OXIDE
     Indication: Product used for unknown indication
     Route: 065
  9. MOSAPRIDE [Interacting]
     Active Substance: MOSAPRIDE
     Indication: Product used for unknown indication
     Route: 065
  10. ELOBIXIBAT [Interacting]
     Active Substance: ELOBIXIBAT
     Indication: Product used for unknown indication
     Route: 065
  11. VONOPRAZAN [Interacting]
     Active Substance: VONOPRAZAN
     Indication: Product used for unknown indication
     Route: 065
  12. STALEVO [Interacting]
     Active Substance: CARBIDOPA\ENTACAPONE\LEVODOPA
     Indication: Product used for unknown indication
     Dosage: LEVODOPA 600 MG/DAY, ENTAKAPON 600 MG/DAY?6 TABLET/DAY
     Route: 065
  13. RASAGILINE [Interacting]
     Active Substance: RASAGILINE
     Indication: Product used for unknown indication
     Route: 065
  14. SENNOSIDES [Interacting]
     Active Substance: SENNOSIDES
     Indication: Product used for unknown indication
     Route: 065

REACTIONS (8)
  - Orthostatic hypotension [Unknown]
  - Drug interaction [Unknown]
  - Toxicity to various agents [Unknown]
  - Renal impairment [Recovering/Resolving]
  - Anal incontinence [Recovering/Resolving]
  - Urinary incontinence [Recovering/Resolving]
  - Generalised tonic-clonic seizure [Recovered/Resolved]
  - Delirium [Recovered/Resolved]
